FAERS Safety Report 10268579 (Version 1)
Quarter: 2014Q2

REPORT INFORMATION
  Report Type: Spontaneous
  Country: FR (occurrence: FR)
  Receive Date: 20140630
  Receipt Date: 20140630
  Transmission Date: 20141212
  Serious: Yes (Hospitalization)
  Sender: FDA-Public Use
  Company Number: FR-PFIZER INC-2014172702

PATIENT
  Age: 35 Year
  Sex: Female
  Weight: 57.5 kg

DRUGS (8)
  1. IBUPROFEN [Suspect]
     Dosage: UNK
     Dates: start: 201402, end: 201402
  2. CYTOTEC [Suspect]
     Indication: ABORTION INDUCED
     Dosage: UNK
     Route: 048
     Dates: start: 201402, end: 201402
  3. MIFEGYNE [Suspect]
     Indication: ABORTION INDUCED
     Dosage: UNK
     Route: 048
     Dates: start: 201402, end: 201402
  4. RHOPHYLAC SRK [Concomitant]
     Indication: PROPHYLAXIS
     Dosage: UNK
     Dates: start: 20140218, end: 20140218
  5. PROFENID [Concomitant]
     Indication: PAIN
  6. PARACETAMOL [Concomitant]
     Indication: PAIN
  7. ACUPAN [Concomitant]
     Indication: PAIN
  8. MINIDRIL [Concomitant]
     Dosage: UNK
     Dates: start: 20140218, end: 20140227

REACTIONS (4)
  - Pruritus [Recovered/Resolved]
  - Urticaria [Recovered/Resolved]
  - Hypersensitivity [Unknown]
  - Metrorrhagia [Unknown]
